FAERS Safety Report 4747317-9 (Version None)
Quarter: 2005Q3

REPORT INFORMATION
  Report Type: 
  Country: None (occurrence: None)
  Receive Date: 20050816
  Receipt Date: 20050808
  Transmission Date: 20060218
  Serious: Yes (Other)
  Sender: FDA-Public Use
  Company Number: 216746

PATIENT
  Age: 77 Year
  Sex: Male
  Weight: 78.5 kg

DRUGS (1)
  1. AVASTIN [Suspect]
     Indication: COLORECTAL CANCER METASTATIC
     Dosage: 5 MG/KG, Q2W
     Dates: start: 20041115

REACTIONS (2)
  - ANAEMIA [None]
  - HAEMORRHAGE [None]
